FAERS Safety Report 12797886 (Version 1)
Quarter: 2016Q3

REPORT INFORMATION
  Report Type: Spontaneous
  Country: ES (occurrence: ES)
  Receive Date: 20160930
  Receipt Date: 20160930
  Transmission Date: 20161109
  Serious: Yes (Death, Hospitalization)
  Sender: FDA-Public Use
  Company Number: ES-ROCHE-1836726

PATIENT
  Age: 79 Year
  Sex: Male

DRUGS (1)
  1. ACTILYSE [Suspect]
     Active Substance: ALTEPLASE
     Indication: ISCHAEMIC STROKE
     Dosage: ACTILYSE POWDER 20MG VIAL PLUS SOLVENT FOR SOLUTION, WITH DOSE PER APPLICATION OF 6MG GIVEN ONCE VIA
     Route: 042
     Dates: start: 20160204, end: 20160204

REACTIONS (1)
  - Cerebral haemorrhage [Fatal]

NARRATIVE: CASE EVENT DATE: 20160204
